FAERS Safety Report 6229445-4 (Version None)
Quarter: 2009Q2

REPORT INFORMATION
  Report Type: 
  Country: None (occurrence: None)
  Receive Date: 20090615
  Receipt Date: 20090608
  Transmission Date: 20091009
  Serious: Yes (Hospitalization)
  Sender: FDA-Public Use
  Company Number: A0731244A

PATIENT
  Sex: Male

DRUGS (4)
  1. AVANDIA [Suspect]
     Dosage: 4MG PER DAY
     Route: 048
  2. NEXIUM [Concomitant]
  3. ZOCOR [Concomitant]
  4. METFORMIN HYDROCHLORIDE [Concomitant]

REACTIONS (3)
  - CARDIAC FAILURE CONGESTIVE [None]
  - CORONARY ARTERY DISEASE [None]
  - MYOCARDIAL INFARCTION [None]
